FAERS Safety Report 5524741-8 (Version None)
Quarter: 2007Q4

REPORT INFORMATION
  Report Type: 
  Country: None (occurrence: None)
  Receive Date: 20071123
  Receipt Date: 20071112
  Transmission Date: 20080405
  Serious: Yes (Hospitalization)
  Sender: FDA-Public Use
  Company Number: PHBS2007KR19116

PATIENT
  Age: 24 Year
  Sex: Female

DRUGS (2)
  1. CYCLOSPORINE [Suspect]
     Indication: RENAL TRANSPLANT
     Route: 065
  2. MYCOPHENOLATE MOFETIL [Suspect]
     Indication: RENAL TRANSPLANT

REACTIONS (9)
  - ABSCESS [None]
  - ACID FAST BACILLI INFECTION [None]
  - ERYTHEMA [None]
  - LOCAL SWELLING [None]
  - MYCOBACTERIAL INFECTION [None]
  - PURULENT DISCHARGE [None]
  - PYOMYOSITIS [None]
  - TENDERNESS [None]
  - WOUND DEBRIDEMENT [None]
